FAERS Safety Report 4378911-5 (Version None)
Quarter: 2004Q2

REPORT INFORMATION
  Report Type: 
  Country: None (occurrence: None)
  Receive Date: 20040601
  Receipt Date: 20040202
  Transmission Date: 20050107
  Serious: No
  Sender: FDA-Public Use
  Company Number: WAES0402USA00094

PATIENT
  Age: 66 Year
  Sex: Male
  Weight: 87.0906 kg

DRUGS (4)
  1. ZETIA [Suspect]
     Dosage: 10 MG/PO
     Route: 048
     Dates: start: 20030502
  2. FLOMAX [Concomitant]
  3. LIPITOR [Concomitant]
  4. SYNTHROID [Concomitant]

REACTIONS (3)
  - ALANINE AMINOTRANSFERASE INCREASED [None]
  - ASPARTATE AMINOTRANSFERASE INCREASED [None]
  - HEPATIC STEATOSIS [None]
